FAERS Safety Report 7354166-4 (Version None)
Quarter: 2011Q1

REPORT INFORMATION
  Report Type: 
  Country: None (occurrence: None)
  Receive Date: 20110316
  Receipt Date: 20110310
  Transmission Date: 20110831
  Serious: Yes (Hospitalization)
  Sender: FDA-Public Use
  Company Number: US-BIOGENIDEC-2011BI001004

PATIENT
  Age: 48 Year
  Sex: Male
  Weight: 108 kg

DRUGS (2)
  1. LAMICTAL [Concomitant]
     Indication: CONVULSION
  2. TYSABRI [Suspect]
     Indication: MULTIPLE SCLEROSIS
     Route: 042
     Dates: start: 20090514, end: 20101026

REACTIONS (3)
  - SECONDARY PROGRESSIVE MULTIPLE SCLEROSIS [None]
  - DEPRESSION [None]
  - CONVULSION [None]
